FAERS Safety Report 6139898-8 (Version None)
Quarter: 2009Q1

REPORT INFORMATION
  Report Type: 
  Country: None (occurrence: None)
  Receive Date: 20090331
  Receipt Date: 20090331
  Transmission Date: 20090719
  Serious: No
  Sender: FDA-Public Use
  Company Number: None

PATIENT
  Age: 74 Year
  Sex: Male
  Weight: 88.4514 kg

DRUGS (10)
  1. LEVAQUIN [Suspect]
     Indication: PNEUMONIA
     Dosage: PO
     Route: 048
     Dates: start: 20071201
  2. PREDNISONE [Suspect]
     Dosage: 5 MG QD PO, YEARS
     Route: 048
  3. METHOTREXATE [Concomitant]
  4. OMEPRAZOLE [Concomitant]
  5. NORCO [Concomitant]
  6. PLAQUENIL [Concomitant]
  7. FOLIC ACID [Concomitant]
  8. ALTACE [Concomitant]
  9. LYRICA [Concomitant]
  10. LEFLUNOMIDE [Concomitant]

REACTIONS (4)
  - JOINT SWELLING [None]
  - OEDEMA PERIPHERAL [None]
  - TENDON PAIN [None]
  - TENDON RUPTURE [None]
